FAERS Safety Report 8485341-3 (Version None)
Quarter: 2012Q3

REPORT INFORMATION
  Report Type: 
  Country: None (occurrence: None)
  Receive Date: 20120703
  Receipt Date: 20120702
  Transmission Date: 20120928
  Serious: Yes (Other)
  Sender: FDA-Public Use
  Company Number: GB-ROCHE-1071773

PATIENT
  Sex: Male
  Weight: 93 kg

DRUGS (7)
  1. DIAZEPAM [Concomitant]
     Route: 048
  2. LACTULOSE [Concomitant]
     Indication: CONSTIPATION
     Route: 048
  3. DIHYDROCODEIN [Concomitant]
     Indication: PAIN
     Route: 048
  4. ACTEMRA [Suspect]
  5. ACTEMRA [Suspect]
     Indication: SERONEGATIVE ARTHRITIS
     Route: 042
     Dates: start: 20101001, end: 20120420
  6. AMILORIDE HYDROCHLORIDE [Concomitant]
     Indication: HYPERTENSION
     Route: 048
  7. ACETAMINOPHEN AND CODEINE PHOSPHATE [Concomitant]
     Indication: PAIN
     Dosage: 30/500
     Route: 048

REACTIONS (1)
  - ALANINE AMINOTRANSFERASE INCREASED [None]
